FAERS Safety Report 6828629-1 (Version None)
Quarter: 2010Q3

REPORT INFORMATION
  Report Type: 
  Country: None (occurrence: None)
  Receive Date: 20100709
  Receipt Date: 20070214
  Transmission Date: 20110219
  Serious: No
  Sender: FDA-Public Use
  Company Number: US-PFIZER INC-2007013451

PATIENT
  Sex: Female
  Weight: 66.22 kg

DRUGS (5)
  1. CHANTIX [Suspect]
     Indication: SMOKING CESSATION THERAPY
     Dates: start: 20070206
  2. ZOLOFT [Suspect]
     Indication: DEPRESSION
     Dates: end: 20070207
  3. PREVACID [Concomitant]
     Indication: GASTROOESOPHAGEAL REFLUX DISEASE
  4. LEXAPRO [Concomitant]
     Indication: DEPRESSION
  5. KLONOPIN [Concomitant]

REACTIONS (4)
  - GASTROOESOPHAGEAL REFLUX DISEASE [None]
  - NAUSEA [None]
  - RETCHING [None]
  - VOMITING [None]
